FAERS Safety Report 23141669 (Version 1)
Quarter: 2023Q4

REPORT INFORMATION
  Report Type: Spontaneous
  Country: MX (occurrence: MX)
  Receive Date: 20231103
  Receipt Date: 20231103
  Transmission Date: 20240110
  Serious: Yes (Death)
  Sender: FDA-Public Use
  Company Number: MX-BoehringerIngelheim-2023-BI-270526

PATIENT
  Age: 24 Year
  Sex: Male

DRUGS (3)
  1. TELMISARTAN [Suspect]
     Active Substance: TELMISARTAN
     Indication: Hypertension
  2. PRAZOSIN [Suspect]
     Active Substance: PRAZOSIN
     Indication: Hypertension
  3. NIFEDIPINE [Suspect]
     Active Substance: NIFEDIPINE
     Indication: Hypertension

REACTIONS (4)
  - Electrolyte imbalance [Fatal]
  - Dysphonia [Unknown]
  - Dysphagia [Unknown]
  - Upper respiratory tract infection [Unknown]
